FAERS Safety Report 4920573-X (Version None)
Quarter: 2006Q1

REPORT INFORMATION
  Report Type: 
  Country: None (occurrence: None)
  Receive Date: 20060217
  Receipt Date: 20060205
  Transmission Date: 20060701
  Serious: Yes (Death)
  Sender: FDA-Public Use
  Company Number: 2006018156

PATIENT
  Age: 67 Year
  Sex: Female

DRUGS (5)
  1. CEFOBID [Suspect]
     Indication: LOWER RESPIRATORY TRACT INFECTION
     Dosage: 2 GRAM (1 GRAM, 2 IN  1D), INTRAVENOUS
     Route: 042
     Dates: start: 20060130, end: 20060201
  2. DIFLUCAN [Concomitant]
  3. INSULIN [Concomitant]
  4. BISOPROLOL FUMARATE [Concomitant]
  5. RYTHMONORM(PROPAFENONE HYDEROCHLORIDE) [Concomitant]

REACTIONS (2)
  - CARDIAC ARREST [None]
  - RASH [None]
